FAERS Safety Report 19455420 (Version 2)
Quarter: 2021Q3

REPORT INFORMATION
  Report Type: Report from Study
  Country: CA (occurrence: CA)
  Receive Date: 20210623
  Receipt Date: 20210707
  Transmission Date: 20211014
  Serious: Yes (Other)
  Sender: FDA-Public Use
  Company Number: CA-BIOGEN-2021BI01022526

PATIENT
  Age: 29 Year
  Sex: Female

DRUGS (4)
  1. TECFIDERA [Suspect]
     Active Substance: DIMETHYL FUMARATE
     Indication: MULTIPLE SCLEROSIS
     Dosage: 120MG PO QD
     Route: 048
     Dates: start: 20201214, end: 20201220
  2. TECFIDERA [Suspect]
     Active Substance: DIMETHYL FUMARATE
     Dosage: 120MG PO QAM AND 240MG PO QHS
     Route: 048
     Dates: start: 20201228, end: 20210103
  3. TECFIDERA [Suspect]
     Active Substance: DIMETHYL FUMARATE
     Dosage: 120MG PO BID
     Route: 048
     Dates: start: 20201221, end: 20201227
  4. TECFIDERA [Suspect]
     Active Substance: DIMETHYL FUMARATE
     Dosage: MAINTENANCE DOSE
     Route: 048
     Dates: start: 20210104, end: 20210630

REACTIONS (6)
  - Diabetes mellitus [Not Recovered/Not Resolved]
  - Drug ineffective [Recovered/Resolved]
  - Underdose [Unknown]
  - Lymphocyte count decreased [Not Recovered/Not Resolved]
  - Product dose omission issue [Unknown]
  - Flushing [Not Recovered/Not Resolved]

NARRATIVE: CASE EVENT DATE: 20201214
